FAERS Safety Report 5014661-X (Version None)
Quarter: 2006Q2

REPORT INFORMATION
  Report Type: 
  Country: None (occurrence: None)
  Receive Date: 20060531
  Receipt Date: 20060529
  Transmission Date: 20061013
  Serious: Yes (Other)
  Sender: FDA-Public Use
  Company Number: CA-MERCK-0605CAN00159

PATIENT
  Age: 30 Year
  Sex: Male

DRUGS (2)
  1. SINGULAIR [Suspect]
     Route: 048
  2. CORTICOSTEROIDS (UNSPECIFIED) [Concomitant]
     Route: 065

REACTIONS (1)
  - ALLERGIC GRANULOMATOUS ANGIITIS [None]
